FAERS Safety Report 5520806-5 (Version None)
Quarter: 2007Q4

REPORT INFORMATION
  Report Type: 
  Country: None (occurrence: None)
  Receive Date: 20071119
  Receipt Date: 20071105
  Transmission Date: 20080405
  Serious: Yes (Hospitalization)
  Sender: FDA-Public Use
  Company Number: US-AMGEN-US248811

PATIENT
  Sex: Male
  Weight: 86.3 kg

DRUGS (4)
  1. PANITUMUMAB [Suspect]
     Indication: SQUAMOUS CELL CARCINOMA
     Route: 042
     Dates: start: 20071010
  2. NEULASTA [Concomitant]
     Route: 065
     Dates: start: 20071012
  3. DOCETAXEL [Concomitant]
     Route: 065
  4. CISPLATIN [Concomitant]
     Route: 065

REACTIONS (3)
  - DEHYDRATION [None]
  - DIARRHOEA [None]
  - NEUTROPENIA [None]
